FAERS Safety Report 4765878-0 (Version None)
Quarter: 2005Q3

REPORT INFORMATION
  Report Type: 
  Country: None (occurrence: None)
  Receive Date: 20050912
  Receipt Date: 20050901
  Transmission Date: 20060218
  Serious: Yes (Hospitalization)
  Sender: FDA-Public Use
  Company Number: US-KINGPHARMUSA00001-K200501155

PATIENT
  Age: 70 Year
  Sex: Male

DRUGS (4)
  1. ALTACE [Suspect]
     Indication: ESSENTIAL HYPERTENSION
     Dosage: UNK, UNK
     Route: 048
     Dates: end: 20050721
  2. KETOPROFEN [Suspect]
     Indication: BACK PAIN
     Dosage: 150 MG, BID
     Route: 048
     Dates: start: 20050616, end: 20050710
  3. LIPANTHYL ^BRISTOL-MYERS SQUIBB^ [Concomitant]
     Indication: LIPID METABOLISM DISORDER
     Dosage: UNK, QD
     Route: 048
     Dates: end: 20050721
  4. DAFLON [Concomitant]
     Dosage: UNK, UNK
     Route: 048
     Dates: end: 20050722

REACTIONS (2)
  - BACK PAIN [None]
  - RENAL FAILURE ACUTE [None]
